FAERS Safety Report 6167284-3 (Version None)
Quarter: 2009Q2

REPORT INFORMATION
  Report Type: 
  Country: None (occurrence: None)
  Receive Date: 20090424
  Receipt Date: 20090416
  Transmission Date: 20091009
  Serious: Yes (Hospitalization)
  Sender: FDA-Public Use
  Company Number: DE-BAYER-200917193GPV

PATIENT
  Age: 39 Year
  Sex: Female

DRUGS (1)
  1. ULTRAVIST 370 [Suspect]
     Indication: CHEST PAIN
     Route: 042
     Dates: start: 20090305, end: 20090305

REACTIONS (8)
  - AURICULAR SWELLING [None]
  - CONVERSION DISORDER [None]
  - EYELID OEDEMA [None]
  - HYPOTENSION [None]
  - PARAESTHESIA [None]
  - RASH GENERALISED [None]
  - SKIN TIGHTNESS [None]
  - SPEECH DISORDER [None]
